FAERS Safety Report 4437725-8 (Version None)
Quarter: 2004Q3

REPORT INFORMATION
  Report Type: 
  Country: None (occurrence: None)
  Receive Date: 20040831
  Receipt Date: 20030321
  Transmission Date: 20050211
  Serious: No
  Sender: FDA-Public Use
  Company Number: US-GLAXOSMITHKLINE-A0401332A

PATIENT
  Sex: Male

DRUGS (6)
  1. ZOVIRAX [Suspect]
     Dosage: 400MG UNKNOWN
     Route: 048
  2. NORVASC [Concomitant]
  3. AMITRIPTYLINE HCL [Concomitant]
  4. ZOCOR [Concomitant]
  5. ASPIRIN [Concomitant]
  6. ALPRENOLOL [Concomitant]

REACTIONS (1)
  - DIARRHOEA [None]
